FAERS Safety Report 23997021 (Version 1)
Quarter: 2024Q2

REPORT INFORMATION
  Report Type: Report from Study
  Country: CO (occurrence: CO)
  Receive Date: 20240621
  Receipt Date: 20240621
  Transmission Date: 20240716
  Serious: Yes (Life-Threatening, Hospitalization, Other)
  Sender: FDA-Public Use
  Company Number: CO-ABBVIE-5803266

PATIENT
  Age: 74 Year
  Sex: Male

DRUGS (1)
  1. VENCLEXTA [Suspect]
     Active Substance: VENETOCLAX
     Indication: Acute myeloid leukaemia
     Dosage: FORM STRENGTH: 100 MG
     Route: 048
     Dates: start: 20231128, end: 20240207

REACTIONS (5)
  - Hypertension [Not Recovered/Not Resolved]
  - Memory impairment [Unknown]
  - Unevaluable event [Unknown]
  - Pyrexia [Not Recovered/Not Resolved]
  - Prostatic operation [Unknown]

NARRATIVE: CASE EVENT DATE: 20240601
